FAERS Safety Report 11904379 (Version 1)
Quarter: 2016Q1

REPORT INFORMATION
  Report Type: Spontaneous
  Country: US (occurrence: US)
  Receive Date: 20160108
  Receipt Date: 20160108
  Transmission Date: 20160526
  Serious: No
  Sender: FDA-Public Use
  Company Number: US-ROCHE-1614131

PATIENT
  Sex: Female

DRUGS (1)
  1. RITUXAN [Suspect]
     Active Substance: RITUXIMAB
     Indication: SJOGREN^S SYNDROME
     Dosage: IN /OCT/2014: MOST RECENT DOSE OF RITUXIMAB
     Route: 042

REACTIONS (11)
  - Peripheral coldness [Unknown]
  - Arthralgia [Not Recovered/Not Resolved]
  - Paraesthesia [Not Recovered/Not Resolved]
  - Muscle spasms [Not Recovered/Not Resolved]
  - Memory impairment [Not Recovered/Not Resolved]
  - Inflammation [Not Recovered/Not Resolved]
  - Pain in extremity [Not Recovered/Not Resolved]
  - Gait disturbance [Unknown]
  - Hypoaesthesia [Unknown]
  - Burning sensation [Not Recovered/Not Resolved]
  - Feeling hot [Not Recovered/Not Resolved]
